FAERS Safety Report 8910715 (Version 1)
Quarter: 2012Q4

REPORT INFORMATION
  Report Type: Spontaneous
  Country: IT (occurrence: None)
  Receive Date: 20121107
  Receipt Date: 20121107
  Transmission Date: 20130627
  Serious: Yes (Hospitalization)
  Sender: FDA-Public Use
  Company Number: FK201203246

PATIENT
  Age: 57 Year
  Sex: Female

DRUGS (6)
  1. FLUOROURACIL [Suspect]
     Indication: CHEMOTHERAPY
     Dosage: 1 Dosage forms, Cyclical, Intravenous (not otherwise specified)
     Route: 042
     Dates: start: 20120816, end: 20120816
  2. IRINOTECAN [Suspect]
     Indication: CHEMOTHERAPY
     Dosage: 1 Dosage forms, Cyclical, Intravenous (not otherwise specified)
     Route: 042
     Dates: start: 20120816, end: 20120816
  3. BEVACIZUMAB [Suspect]
     Indication: CHEMOTHERAPY
     Dosage: 1 Dosage forms, Cyclical, Intravenous (not otherwise specified)
     Route: 042
     Dates: start: 20120816, end: 20120816
  4. FOLIC ACID [Suspect]
     Indication: CHEMOTHERAPY
     Dosage: 1 Dosage forms, Cyclical, Intravenous (not otherwise specified)
     Route: 042
     Dates: start: 20120816, end: 20120816
  5. VALSARTAN (VALSARTAN) [Concomitant]
  6. CARVEDILOLO (CARVEDILOL) [Concomitant]

REACTIONS (4)
  - Abdominal pain [None]
  - Diarrhoea [None]
  - Leukopenia [None]
  - Pyrexia [None]
